FAERS Safety Report 4735888-8 (Version None)
Quarter: 2005Q3

REPORT INFORMATION
  Report Type: 
  Country: None (occurrence: None)
  Receive Date: 20050804
  Receipt Date: 20050804
  Transmission Date: 20060218
  Serious: Yes (Life-Threatening, Hospitalization)
  Sender: FDA-Public Use
  Company Number: None

PATIENT
  Sex: Female

DRUGS (2)
  1. ZOSYN [Suspect]
     Indication: BREAST CANCER
     Dosage: 3.375G Q6H INTRAVENOUS
     Route: 042
     Dates: start: 20050510, end: 20050518
  2. VENLAFAXINE [Suspect]
     Dosage: 37.5MG QDAY ORAL
     Route: 048

REACTIONS (2)
  - LIVER DISORDER [None]
  - LIVER FUNCTION TEST ABNORMAL [None]
